FAERS Safety Report 6144892-7 (Version None)
Quarter: 2009Q2

REPORT INFORMATION
  Report Type: 
  Country: None (occurrence: None)
  Receive Date: 20090402
  Receipt Date: 20090402
  Transmission Date: 20091009
  Serious: No
  Sender: FDA-Public Use
  Company Number: None

PATIENT
  Age: 51 Year
  Sex: Female
  Weight: 64.4108 kg

DRUGS (1)
  1. PROTONIX [Suspect]
     Indication: GASTROOESOPHAGEAL REFLUX DISEASE
     Dosage: 20MG ONCE DAILY PO
     Route: 048
     Dates: start: 19960101, end: 20090101

REACTIONS (5)
  - OSTEOPENIA [None]
  - OSTEOPOROSIS [None]
  - PRODUCT QUALITY ISSUE [None]
  - RESORPTION BONE INCREASED [None]
  - SKELETAL INJURY [None]
